FAERS Safety Report 18696669 (Version 1)
Quarter: 2021Q1

REPORT INFORMATION
  Report Type: Other
  Country: US (occurrence: US)
  Receive Date: 20210104
  Receipt Date: 20210104
  Transmission Date: 20210419
  Serious: Yes (Other)
  Sender: FDA-Public Use
  Company Number: US-ROCHE-2711503

PATIENT
  Age: 53 Year
  Sex: Male

DRUGS (2)
  1. ACTILYSE [Suspect]
     Active Substance: ALTEPLASE
     Indication: PULMONARY EMBOLISM
     Dosage: 100 MG OVER 2 HOURS FREQUENCY: 1, FREQUENCY UNIT: 809
     Route: 042
  2. ACTILYSE [Suspect]
     Active Substance: ALTEPLASE
     Route: 042

REACTIONS (1)
  - Mouth haemorrhage [Recovering/Resolving]
